FAERS Safety Report 21698865 (Version 1)
Quarter: 2022Q4

REPORT INFORMATION
  Report Type: Report from Study
  Country: JP (occurrence: JP)
  Receive Date: 20221208
  Receipt Date: 20221208
  Transmission Date: 20230113
  Serious: Yes (Hospitalization, Other)
  Sender: FDA-Public Use
  Company Number: JP-ONO-2022JP032532

PATIENT
  Age: 61 Year
  Sex: Female
  Weight: 69.7 kg

DRUGS (30)
  1. NIVOLUMAB [Suspect]
     Active Substance: NIVOLUMAB
     Indication: Rectal cancer
     Route: 041
     Dates: start: 20221026
  2. BEVACIZUMAB [Suspect]
     Active Substance: BEVACIZUMAB
     Indication: Rectal cancer
     Dosage: 340 MG, Q2W
     Route: 042
     Dates: start: 20221026
  3. LEVOLEUCOVORIN CALCIUM [Suspect]
     Active Substance: LEVOLEUCOVORIN CALCIUM
     Indication: Rectal cancer
     Dosage: 325 MG, Q2W
     Route: 042
     Dates: start: 20221026
  4. OXALIPLATIN [Suspect]
     Active Substance: OXALIPLATIN
     Indication: Rectal cancer
     Dosage: 140 MG, Q2W
     Route: 042
     Dates: start: 20221026
  5. FLUOROURACIL [Suspect]
     Active Substance: FLUOROURACIL
     Indication: Rectal cancer
     Dosage: 650 MG, Q2W
     Route: 040
     Dates: start: 20221026
  6. FLUOROURACIL [Suspect]
     Active Substance: FLUOROURACIL
     Dosage: 4150 MG, Q2W
     Route: 042
     Dates: start: 20221026
  7. MAGROLIMAB [Suspect]
     Active Substance: MAGROLIMAB
     Indication: Rectal cancer
     Route: 042
     Dates: start: 20221026, end: 20221026
  8. MAGROLIMAB [Suspect]
     Active Substance: MAGROLIMAB
     Route: 042
     Dates: start: 20221101, end: 20221117
  9. MAGROLIMAB [Suspect]
     Active Substance: MAGROLIMAB
     Route: 042
     Dates: start: 20221124
  10. TELMISARTAN [Concomitant]
     Active Substance: TELMISARTAN
     Indication: Hypertension
     Dosage: 80 MG, EVERYDAY
     Route: 048
     Dates: start: 2017
  11. NIFEDIPINE [Concomitant]
     Active Substance: NIFEDIPINE
     Indication: Hypertension
     Dosage: 20 MG, EVERYDAY
     Route: 048
     Dates: start: 2017
  12. PITAVASTATIN CALCIUM [Concomitant]
     Active Substance: PITAVASTATIN CALCIUM
     Indication: Hyperlipidaemia
     Dosage: 1 MG, EVERYDAY
     Route: 048
     Dates: start: 2015
  13. ALLOPURINOL [Concomitant]
     Active Substance: ALLOPURINOL
     Indication: Hyperuricaemia
     Dosage: 100 MG, EVERYDAY
     Route: 048
     Dates: start: 2015
  14. LATANOPROST [Concomitant]
     Active Substance: LATANOPROST
     Indication: Glaucoma
     Dosage: APPROPRIATE AMOUNT, PRN, 1
     Route: 047
     Dates: start: 20220705
  15. EPINASTINE HYDROCHLORIDE [Concomitant]
     Active Substance: EPINASTINE HYDROCHLORIDE
     Indication: Eye disorder prophylaxis
     Dosage: APPROPRIATE AMOUNT, PRN, 1
     Route: 047
     Dates: start: 2021
  16. LOXOPROFEN SODIUM [Concomitant]
     Active Substance: LOXOPROFEN SODIUM
     Indication: Spondylolisthesis
     Dosage: 60 MG, PRN
     Route: 048
     Dates: start: 2019
  17. LOXOPROFEN SODIUM [Concomitant]
     Active Substance: LOXOPROFEN SODIUM
     Indication: Tumour pain
     Route: 065
  18. LOXOPROFEN SODIUM [Concomitant]
     Active Substance: LOXOPROFEN SODIUM
     Indication: Tumour associated fever
     Route: 065
  19. REBAMIPIDE [Concomitant]
     Active Substance: REBAMIPIDE
     Indication: Gastritis prophylaxis
     Dosage: 100 MG, PRN
     Route: 048
     Dates: start: 2019
  20. KETOPROFEN [Concomitant]
     Active Substance: KETOPROFEN
     Indication: Spondylolisthesis
     Dosage: 40 MG, PRN
     Route: 062
     Dates: start: 2021
  21. KETOPROFEN [Concomitant]
     Active Substance: KETOPROFEN
     Indication: Spondylolisthesis
     Dosage: 240 MG, PRN
     Route: 062
     Dates: start: 2021
  22. MAGNESIUM OXIDE [Concomitant]
     Active Substance: MAGNESIUM OXIDE
     Indication: Constipation
     Dosage: 500 MG, PRN
     Route: 048
     Dates: start: 2015
  23. ELOBIXIBAT [Concomitant]
     Active Substance: ELOBIXIBAT
     Indication: Constipation
     Dosage: 10 MG, PRN
     Route: 048
     Dates: start: 2015
  24. SODIUM PICOSULFATE [Concomitant]
     Active Substance: SODIUM PICOSULFATE
     Indication: Constipation
     Dosage: APPROPRIATE AMOUNT, PRN
     Route: 048
     Dates: start: 20221030
  25. SODIUM BICARBONATE\SODIUM PHOSPHATE, MONOBASIC ANHYDROUS [Concomitant]
     Active Substance: SODIUM BICARBONATE\SODIUM PHOSPHATE, MONOBASIC, ANHYDROUS
     Indication: Constipation
     Dosage: 1 DF, PRN
     Route: 054
     Dates: start: 20221031
  26. PROCHLORPERAZINE MALEATE [Concomitant]
     Active Substance: PROCHLORPERAZINE MALEATE
     Indication: Nausea
     Dosage: 5 MG, PRN
     Route: 048
     Dates: start: 20221111
  27. FLUTICASONE PROPIONATE\SALMETEROL XINAFOATE [Concomitant]
     Active Substance: FLUTICASONE PROPIONATE\SALMETEROL XINAFOATE
     Indication: Cough
     Dosage: 1 DF, Q12H
     Route: 055
     Dates: start: 20220818
  28. CALONAL [Concomitant]
     Active Substance: ACETAMINOPHEN
     Indication: Tumour pain
     Dosage: 600 MG, PRN
     Route: 048
     Dates: start: 20221123
  29. CALONAL [Concomitant]
     Active Substance: ACETAMINOPHEN
     Indication: Tumour associated fever
     Route: 065
  30. QUETIAPINE [Concomitant]
     Active Substance: QUETIAPINE
     Indication: Insomnia
     Dosage: 12.5 MG, PRN
     Route: 048
     Dates: start: 20221129

REACTIONS (1)
  - Immune-mediated enterocolitis [Not Recovered/Not Resolved]

NARRATIVE: CASE EVENT DATE: 20221202
